FAERS Safety Report 9220705 (Version 1)
Quarter: 2013Q2

REPORT INFORMATION
  Report Type: Spontaneous
  Country: US (occurrence: US)
  Receive Date: 20130409
  Receipt Date: 20130409
  Transmission Date: 20140414
  Serious: No
  Sender: FDA-Public Use
  Company Number: US-009507513-1304USA000594

PATIENT
  Sex: Female

DRUGS (5)
  1. PEGINTRON [Suspect]
     Indication: HEPATITIS C
     Dosage: UNK
     Dates: start: 19990101, end: 19991001
  2. PEGINTRON [Suspect]
     Dosage: UNK
     Dates: start: 20120608
  3. REBETOL [Suspect]
     Dosage: UNK
     Route: 048
     Dates: start: 19990101, end: 19991001
  4. REBETOL [Suspect]
     Dosage: UNK
     Route: 048
     Dates: start: 20120608
  5. VICTRELIS [Suspect]
     Indication: HEPATITIS C
     Dosage: UNK
     Route: 048
     Dates: start: 20120712, end: 20130214

REACTIONS (4)
  - White blood cell count decreased [Unknown]
  - Leukopenia [Unknown]
  - Drug ineffective [Unknown]
  - Therapeutic response decreased [Unknown]
